FAERS Safety Report 10179919 (Version 1)
Quarter: 2014Q2

REPORT INFORMATION
  Report Type: Spontaneous
  Country: US (occurrence: US)
  Receive Date: 20140519
  Receipt Date: 20140519
  Transmission Date: 20141212
  Serious: No
  Sender: FDA-Public Use
  Company Number: US-AMGEN INC.-USASP2013072339

PATIENT
  Age: 92 Year
  Sex: Female

DRUGS (8)
  1. PROLIA [Suspect]
     Indication: OSTEOPOROSIS POSTMENOPAUSAL
     Dosage: UNK UNK, Q6MO
     Route: 065
     Dates: start: 201210
  2. WARFARIN [Concomitant]
  3. INSULIN [Concomitant]
  4. MICARDIS [Concomitant]
     Dosage: 80 MG, UNK
  5. CRESTOR [Concomitant]
  6. ASPIRIN [Concomitant]
     Dosage: 81 MG, UNK
  7. TOPROL [Concomitant]
     Dosage: 25 MG, UNK
  8. SYNTHROID [Concomitant]
     Dosage: 50 MUG, UNK

REACTIONS (2)
  - Hypoaesthesia [Not Recovered/Not Resolved]
  - Paraesthesia [Not Recovered/Not Resolved]
